FAERS Safety Report 5494019-X (Version None)
Quarter: 2007Q4

REPORT INFORMATION
  Report Type: 
  Country: None (occurrence: None)
  Receive Date: 20071023
  Receipt Date: 20071011
  Transmission Date: 20080405
  Serious: Yes (Other)
  Sender: FDA-Public Use
  Company Number: HU-PFIZER INC-2007083908

PATIENT
  Sex: Female

DRUGS (3)
  1. VARENICLINE TABLETS [Suspect]
     Indication: SMOKING CESSATION THERAPY
     Route: 048
     Dates: start: 20070524, end: 20070705
  2. VERAPAMIL [Concomitant]
     Route: 048
  3. DOXAZOSIN MESYLATE [Concomitant]
     Route: 048

REACTIONS (5)
  - COORDINATION ABNORMAL [None]
  - FATIGUE [None]
  - MYALGIA [None]
  - SOPOR [None]
  - VERTIGO [None]
